FAERS Safety Report 10267284 (Version 2)
Quarter: 2014Q3

REPORT INFORMATION
  Report Type: Spontaneous
  Country: JP (occurrence: JP)
  Receive Date: 20140630
  Receipt Date: 20140706
  Transmission Date: 20150326
  Serious: Yes (Hospitalization)
  Sender: FDA-Public Use
  Company Number: PHHY2014JP079718

PATIENT
  Age: 33 Year
  Sex: Female

DRUGS (5)
  1. LITHIUM CARBONATE. [Concomitant]
     Active Substance: LITHIUM CARBONATE
     Dosage: UNK UKN, UNK
     Route: 048
  2. CLOZARIL [Suspect]
     Active Substance: CLOZAPINE
     Dosage: 350 MG, DAILY
     Route: 048
     Dates: end: 20140622
  3. CLOZARIL [Suspect]
     Active Substance: CLOZAPINE
     Indication: SCHIZOPHRENIA
     Dosage: UNK UKN, UNK
     Route: 048
  4. CLOZARIL [Suspect]
     Active Substance: CLOZAPINE
     Dosage: UNK UKN, UNK
     Route: 048
     Dates: start: 20140623
  5. MAGNEX                             /00883901/ [Concomitant]
     Active Substance: UNSPECIFIED INGREDIENT
     Dosage: UNK UKN, UNK
     Route: 048

REACTIONS (2)
  - Vomiting [Unknown]
  - Appendicitis [Recovered/Resolved]

NARRATIVE: CASE EVENT DATE: 20140620
